FAERS Safety Report 16960589 (Version 1)
Quarter: 2019Q4

REPORT INFORMATION
  Report Type: Spontaneous
  Country: CA (occurrence: CA)
  Receive Date: 20191025
  Receipt Date: 20191025
  Transmission Date: 20200122
  Serious: Yes (Other)
  Sender: FDA-Public Use
  Company Number: CA-TEVA-2019-CA-1125634

PATIENT
  Sex: Female

DRUGS (28)
  1. ACETAMINOPHEN/CAFFEINE/CODEINE PHOSPHATE [Suspect]
     Active Substance: ACETAMINOPHEN\CAFFEINE\CODEINE PHOSPHATE
     Indication: SUBSTANCE DEPENDENCE
  2. BUTALBITAL - ASA CAFFEINE - CODEINE [Suspect]
     Active Substance: ASPIRIN\BUTALBITAL\CAFFEINE\CODEINE
     Indication: SUBSTANCE ABUSE
     Route: 065
  3. CODEINE [Suspect]
     Active Substance: CODEINE
     Indication: SUBSTANCE ABUSE
     Route: 065
  4. CODEINE [Suspect]
     Active Substance: CODEINE
     Indication: SUBSTANCE DEPENDENCE
  5. ALCOHOL. [Suspect]
     Active Substance: ALCOHOL
     Indication: SUBSTANCE ABUSE
     Route: 065
  6. ACETYLSALICYLIC ACID/BUTALBITAL/CAFFEINE/PHENACETIN [Suspect]
     Active Substance: ASPIRIN\BUTALBITAL\CAFFEINE\PHENACETIN
     Indication: SUBSTANCE ABUSE
  7. ATIVAN [Suspect]
     Active Substance: LORAZEPAM
     Indication: SUBSTANCE ABUSE
  8. NICOTINE. [Suspect]
     Active Substance: NICOTINE
     Indication: SUBSTANCE DEPENDENCE
  9. DEMEROL [Suspect]
     Active Substance: MEPERIDINE HYDROCHLORIDE
     Indication: SUBSTANCE DEPENDENCE
     Route: 065
  10. MARIJUANA [Suspect]
     Active Substance: CANNABIS SATIVA SUBSP. INDICA TOP
     Indication: SUBSTANCE DEPENDENCE
     Route: 065
  11. MARIJUANA [Suspect]
     Active Substance: CANNABIS SATIVA SUBSP. INDICA TOP
     Indication: SUBSTANCE ABUSE
  12. ALCOHOL. [Suspect]
     Active Substance: ALCOHOL
     Indication: SUBSTANCE DEPENDENCE
  13. ACETYLSALICYLIC ACID/BUTALBITAL/CAFFEINE/PHENACETIN [Suspect]
     Active Substance: ASPIRIN\BUTALBITAL\CAFFEINE\PHENACETIN
     Indication: SUBSTANCE DEPENDENCE
     Route: 065
  14. COCAINE [Suspect]
     Active Substance: COCAINE
     Indication: SUBSTANCE DEPENDENCE
     Route: 065
  15. DILAUDID [Suspect]
     Active Substance: HYDROMORPHONE HYDROCHLORIDE
     Indication: SUBSTANCE ABUSE
  16. FENTANYL. [Suspect]
     Active Substance: FENTANYL
     Indication: SUBSTANCE ABUSE
     Route: 065
  17. DILAUDID [Suspect]
     Active Substance: HYDROMORPHONE HYDROCHLORIDE
     Indication: SUBSTANCE DEPENDENCE
     Route: 065
  18. GRAVOL [Suspect]
     Active Substance: DIMENHYDRINATE
     Indication: SUBSTANCE ABUSE
  19. METHYLENEDIOXYMETHAMPHETAMINE [Suspect]
     Active Substance: MIDOMAFETAMINE
     Indication: SUBSTANCE ABUSE
  20. ECSTASY [Suspect]
     Active Substance: MIDOMAFETAMINE
     Indication: SUBSTANCE ABUSE
     Route: 065
  21. FENTANYL. [Suspect]
     Active Substance: FENTANYL
     Indication: SUBSTANCE DEPENDENCE
  22. NICOTINE. [Suspect]
     Active Substance: NICOTINE
     Indication: SUBSTANCE ABUSE
     Route: 065
  23. COCAINE [Suspect]
     Active Substance: COCAINE
     Indication: SUBSTANCE ABUSE
  24. DEMEROL [Suspect]
     Active Substance: MEPERIDINE HYDROCHLORIDE
     Indication: SUBSTANCE ABUSE
  25. GRAVOL [Suspect]
     Active Substance: DIMENHYDRINATE
     Indication: SUBSTANCE DEPENDENCE
     Route: 065
  26. ACETAMINOPHEN/CAFFEINE/CODEINE PHOSPHATE [Suspect]
     Active Substance: ACETAMINOPHEN\CAFFEINE\CODEINE PHOSPHATE
     Indication: SUBSTANCE ABUSE
     Route: 065
  27. ATIVAN [Suspect]
     Active Substance: LORAZEPAM
     Indication: SUBSTANCE DEPENDENCE
     Route: 065
  28. METHYLENEDIOXYMETHAMPHETAMINE [Suspect]
     Active Substance: MIDOMAFETAMINE
     Indication: SUBSTANCE DEPENDENCE
     Route: 065

REACTIONS (2)
  - Substance dependence [Unknown]
  - Substance abuse [Unknown]
